FAERS Safety Report 13645858 (Version 1)
Quarter: 2017Q2

REPORT INFORMATION
  Report Type: Spontaneous
  Country: US (occurrence: US)
  Receive Date: 20170613
  Receipt Date: 20170613
  Transmission Date: 20170830
  Serious: No
  Sender: FDA-Public Use
  Company Number: US-AUROBINDO-AUR-APU-2016-06254

PATIENT
  Age: 54 Year
  Sex: Male

DRUGS (1)
  1. SUMATRIPTAN INJECTION USP 6 MG/0.5 ML (SUMATRIPTAN) INJECTION, 6/0.5MG/ML [Suspect]
     Active Substance: SUMATRIPTAN
     Indication: CLUSTER HEADACHE
     Dosage: 0.2 ML, 3-4 DIVIDED DOSES A DAY
     Route: 065
     Dates: start: 201605

REACTIONS (6)
  - Product substitution issue [Not Recovered/Not Resolved]
  - Injection site pain [Not Recovered/Not Resolved]
  - Drug ineffective [Not Recovered/Not Resolved]
  - Product substitution issue [None]
  - Medication overuse headache [Not Recovered/Not Resolved]
  - Underdose [None]

NARRATIVE: CASE EVENT DATE: 201605
